FAERS Safety Report 18280098 (Version 1)
Quarter: 2020Q3

REPORT INFORMATION
  Report Type: Other
  Country: CA (occurrence: CA)
  Receive Date: 20200917
  Receipt Date: 20200917
  Transmission Date: 20201103
  Serious: Yes (Death, Hospitalization, Other)
  Sender: FDA-Public Use
  Company Number: CA-APOTEX-2020AP017859

PATIENT
  Age: 40 Year
  Sex: Male

DRUGS (5)
  1. PSEUDOEPHEDRINE HYDROCHLORIDE. [Suspect]
     Active Substance: PSEUDOEPHEDRINE HYDROCHLORIDE
     Indication: PRODUCT USED FOR UNKNOWN INDICATION
     Dosage: UNK
     Route: 048
  2. ACETAMINOPHEN. [Suspect]
     Active Substance: ACETAMINOPHEN
     Indication: PRODUCT USED FOR UNKNOWN INDICATION
     Dosage: UNK
     Route: 048
  3. DOXYLAMINE SUCCINATE. [Suspect]
     Active Substance: DOXYLAMINE SUCCINATE
     Indication: PRODUCT USED FOR UNKNOWN INDICATION
     Route: 048
  4. DEXTROMETHORPHAN HYDROBROMIDE. [Suspect]
     Active Substance: DEXTROMETHORPHAN HYDROBROMIDE
     Indication: PRODUCT USED FOR UNKNOWN INDICATION
     Dosage: UNK
     Route: 048
  5. DEXTROMETHORPHAN HYDROBROMIDE;DOXYLAMINE SUCCINATE;EPHEDRINE SULFATE;E [ACETAMINOPHEN\ALCOHOL\DEXTROMETHORPHAN HYDROBROMIDE\DOXYLAMINE SUCCINATE\EPHEDRINE SULFATE] [Suspect]
     Active Substance: ACETAMINOPHEN\ALCOHOL\DEXTROMETHORPHAN HYDROBROMIDE\DOXYLAMINE SUCCINATE\EPHEDRINE SULFATE
     Indication: PRODUCT USED FOR UNKNOWN INDICATION
     Dosage: UNK
     Route: 048

REACTIONS (4)
  - Death [Fatal]
  - Oesophageal varices haemorrhage [Fatal]
  - Acute hepatic failure [Fatal]
  - Toxicity to various agents [Fatal]
